FAERS Safety Report 7578808-3 (Version None)
Quarter: 2011Q2

REPORT INFORMATION
  Report Type: 
  Country: None (occurrence: None)
  Receive Date: 20110628
  Receipt Date: 20110627
  Transmission Date: 20111010
  Serious: Yes (Other)
  Sender: FDA-Public Use
  Company Number: US-UCBSA-036094

PATIENT
  Age: 43 Year
  Sex: Female

DRUGS (2)
  1. KEPPRA [Suspect]
     Dosage: 1500MG
  2. VIMPAT [Suspect]
     Dosage: 100 MG

REACTIONS (6)
  - FATIGUE [None]
  - DYSARTHRIA [None]
  - CONVULSION [None]
  - GAIT DISTURBANCE [None]
  - DYSPHEMIA [None]
  - MEMORY IMPAIRMENT [None]
